FAERS Safety Report 18474112 (Version 1)
Quarter: 2020Q4

REPORT INFORMATION
  Report Type: Spontaneous
  Country: US (occurrence: US)
  Receive Date: 20201106
  Receipt Date: 20201106
  Transmission Date: 20210114
  Serious: Yes (Other)
  Sender: FDA-Public Use
  Company Number: None

PATIENT
  Age: 67 Year
  Sex: Male
  Weight: 77.4 kg

DRUGS (1)
  1. MOXETUMOMAB PASUDOTOX. [Suspect]
     Active Substance: MOXETUMOMAB PASUDOTOX
     Indication: HAIRY CELL LEUKAEMIA
     Dosage: ?          OTHER FREQUENCY:DAY 1,3 AND 5 Q28D;?
     Route: 041
     Dates: start: 20200824

REACTIONS (1)
  - Alopecia [None]

NARRATIVE: CASE EVENT DATE: 20200921
